FAERS Safety Report 5110017-X (Version None)
Quarter: 2006Q3

REPORT INFORMATION
  Report Type: 
  Country: None (occurrence: None)
  Receive Date: 20060921
  Receipt Date: 20060907
  Transmission Date: 20061208
  Serious: Yes (Hospitalization, Other)
  Sender: FDA-Public Use
  Company Number: HQWYE516111SEP06

PATIENT
  Age: 4 Year
  Sex: Male
  Weight: 18 kg

DRUGS (3)
  1. ENBREL [Suspect]
     Indication: JUVENILE ARTHRITIS
     Dosage: 25 MG (FREQUENCY UNKNOWN)
     Route: 058
     Dates: start: 20060601, end: 20060824
  2. PREDNISONE [Suspect]
     Indication: JUVENILE ARTHRITIS
     Route: 048
  3. METHOTREXATE [Concomitant]
     Indication: JUVENILE ARTHRITIS

REACTIONS (5)
  - ASTHENIA [None]
  - BLINDNESS TRANSIENT [None]
  - CENTRAL NERVOUS SYSTEM LESION [None]
  - CONFUSIONAL STATE [None]
  - HYPERTENSION [None]
